FAERS Safety Report 8431458-9 (Version None)
Quarter: 2012Q2

REPORT INFORMATION
  Report Type: 
  Country: None (occurrence: None)
  Receive Date: 20120607
  Receipt Date: 20120607
  Transmission Date: 20120825
  Serious: Yes (Hospitalization, Disabling)
  Sender: FDA-Public Use
  Company Number: None

PATIENT
  Sex: Female
  Weight: 52.1637 kg

DRUGS (1)
  1. AZITHROMYCIN [Suspect]
     Indication: SINUSITIS
     Dosage: 2 TABS ON DAY #1 1 EACH DAY AFTER FOR DAYS 2-5
     Dates: start: 20111017, end: 20111023

REACTIONS (3)
  - WEIGHT DECREASED [None]
  - COLITIS [None]
  - DEHYDRATION [None]
